FAERS Safety Report 17313005 (Version 2)
Quarter: 2020Q1

REPORT INFORMATION
  Report Type: Report from Study
  Country: US (occurrence: US)
  Receive Date: 20200124
  Receipt Date: 20200325
  Transmission Date: 20200409
  Serious: No
  Sender: FDA-Public Use
  Company Number: US-ASTRAZENECA-2020SE08546

PATIENT
  Sex: Female
  Weight: 8.8 kg

DRUGS (2)
  1. SYNAGIS [Suspect]
     Active Substance: PALIVIZUMAB
     Indication: ANTIVIRAL PROPHYLAXIS
     Route: 030
     Dates: start: 201911
  2. EPANED [Concomitant]
     Active Substance: ENALAPRIL MALEATE

REACTIONS (1)
  - Nasopharyngitis [Unknown]
